FAERS Safety Report 6145616-X (Version None)
Quarter: 2009Q2

REPORT INFORMATION
  Report Type: 
  Country: None (occurrence: None)
  Receive Date: 20090407
  Receipt Date: 20090403
  Transmission Date: 20091009
  Serious: Yes (Hospitalization)
  Sender: FDA-Public Use
  Company Number: US-ASTRAZENECA-2009UW08534

PATIENT
  Age: 85 Year
  Sex: Male

DRUGS (9)
  1. SEROQUEL [Suspect]
     Route: 048
  2. CELEXA [Concomitant]
  3. NAMENDA [Concomitant]
  4. HALDOL [Concomitant]
  5. GLIPIZIDE [Concomitant]
  6. LISINOPRIL [Concomitant]
     Route: 048
  7. METOPROLOL [Concomitant]
  8. PRAVASTATIN [Concomitant]
  9. FLOMAX [Concomitant]

REACTIONS (3)
  - HYPOTENSION [None]
  - SEDATION [None]
  - UNRESPONSIVE TO STIMULI [None]
